FAERS Safety Report 25605508 (Version 1)
Quarter: 2025Q3

REPORT INFORMATION
  Report Type: Spontaneous
  Country: US (occurrence: US)
  Receive Date: 20250725
  Receipt Date: 20250725
  Transmission Date: 20251020
  Serious: Yes (Life-Threatening, Hospitalization)
  Sender: MYLAN
  Company Number: US-MYLANLABS-2025M1062832

PATIENT
  Age: 48 Year
  Sex: Female

DRUGS (32)
  1. AMLODIPINE [Interacting]
     Active Substance: AMLODIPINE BESYLATE
     Indication: Hypertension
  2. AMLODIPINE [Interacting]
     Active Substance: AMLODIPINE BESYLATE
     Route: 065
  3. AMLODIPINE [Interacting]
     Active Substance: AMLODIPINE BESYLATE
     Route: 065
  4. AMLODIPINE [Interacting]
     Active Substance: AMLODIPINE BESYLATE
  5. VENLAFAXINE [Interacting]
     Active Substance: VENLAFAXINE HYDROCHLORIDE
     Indication: Anxiety
  6. VENLAFAXINE [Interacting]
     Active Substance: VENLAFAXINE HYDROCHLORIDE
     Indication: Bipolar disorder
     Route: 065
  7. VENLAFAXINE [Interacting]
     Active Substance: VENLAFAXINE HYDROCHLORIDE
     Route: 065
  8. VENLAFAXINE [Interacting]
     Active Substance: VENLAFAXINE HYDROCHLORIDE
  9. LISINOPRIL [Suspect]
     Active Substance: LISINOPRIL
     Indication: Hypertension
  10. LISINOPRIL [Suspect]
     Active Substance: LISINOPRIL
     Route: 065
  11. LISINOPRIL [Suspect]
     Active Substance: LISINOPRIL
     Route: 065
  12. LISINOPRIL [Suspect]
     Active Substance: LISINOPRIL
  13. CARIPRAZINE [Interacting]
     Active Substance: CARIPRAZINE
     Indication: Bipolar disorder
  14. CARIPRAZINE [Interacting]
     Active Substance: CARIPRAZINE
     Route: 065
  15. CARIPRAZINE [Interacting]
     Active Substance: CARIPRAZINE
     Route: 065
  16. CARIPRAZINE [Interacting]
     Active Substance: CARIPRAZINE
  17. BREXPIPRAZOLE [Interacting]
     Active Substance: BREXPIPRAZOLE
     Indication: Bipolar disorder
  18. BREXPIPRAZOLE [Interacting]
     Active Substance: BREXPIPRAZOLE
     Route: 065
  19. BREXPIPRAZOLE [Interacting]
     Active Substance: BREXPIPRAZOLE
     Route: 065
  20. BREXPIPRAZOLE [Interacting]
     Active Substance: BREXPIPRAZOLE
  21. TRAZODONE [Interacting]
     Active Substance: TRAZODONE HYDROCHLORIDE
     Indication: Anxiety
  22. TRAZODONE [Interacting]
     Active Substance: TRAZODONE HYDROCHLORIDE
     Route: 065
  23. TRAZODONE [Interacting]
     Active Substance: TRAZODONE HYDROCHLORIDE
     Route: 065
  24. TRAZODONE [Interacting]
     Active Substance: TRAZODONE HYDROCHLORIDE
  25. HYDROXYZINE [Interacting]
     Active Substance: HYDROXYZINE HYDROCHLORIDE
     Indication: Anxiety
  26. HYDROXYZINE [Interacting]
     Active Substance: HYDROXYZINE HYDROCHLORIDE
     Route: 065
  27. HYDROXYZINE [Interacting]
     Active Substance: HYDROXYZINE HYDROCHLORIDE
     Route: 065
  28. HYDROXYZINE [Interacting]
     Active Substance: HYDROXYZINE HYDROCHLORIDE
  29. KETAMINE [Interacting]
     Active Substance: KETAMINE
     Indication: Sedative therapy
  30. KETAMINE [Interacting]
     Active Substance: KETAMINE
     Route: 065
  31. KETAMINE [Interacting]
     Active Substance: KETAMINE
     Route: 065
  32. KETAMINE [Interacting]
     Active Substance: KETAMINE

REACTIONS (4)
  - Serotonin syndrome [Recovered/Resolved]
  - Drug interaction [Recovered/Resolved]
  - Distributive shock [Unknown]
  - Intentional overdose [Unknown]
